FAERS Safety Report 7050399-5 (Version None)
Quarter: 2010Q4

REPORT INFORMATION
  Report Type: 
  Country: None (occurrence: None)
  Receive Date: 20101018
  Receipt Date: 20101011
  Transmission Date: 20110411
  Serious: Yes (Other)
  Sender: FDA-Public Use
  Company Number: US-US-EMD SERONO, INC.-232144J09USA

PATIENT
  Sex: Female

DRUGS (5)
  1. REBIF [Suspect]
     Indication: MULTIPLE SCLEROSIS
     Route: 058
     Dates: start: 20060920
  2. REBIF [Suspect]
     Route: 058
  3. RAMIPRIL [Concomitant]
     Indication: HYPERTENSION
     Route: 065
  4. FUROSEMIDE [Concomitant]
     Indication: CARDIOMYOPATHY
     Route: 065
  5. CARVEDILOL [Concomitant]
     Indication: CARDIOMYOPATHY
     Route: 065

REACTIONS (1)
  - EPILEPSY [None]
